FAERS Safety Report 7061155-6 (Version None)
Quarter: 2010Q4

REPORT INFORMATION
  Report Type: 
  Country: None (occurrence: None)
  Receive Date: 20101026
  Receipt Date: 20100913
  Transmission Date: 20110411
  Serious: Yes (Hospitalization)
  Sender: FDA-Public Use
  Company Number: US-BAYER-201032946NA

PATIENT
  Age: 33 Year
  Sex: Female

DRUGS (12)
  1. MIRENA [Suspect]
     Indication: CONTRACEPTION
     Dosage: FREQUENCY: CONTINUOUS
     Route: 015
     Dates: start: 20100103
  2. COPAXONE [Concomitant]
  3. ADDERALL XR 10 [Concomitant]
  4. ADDERALL 10 [Concomitant]
  5. TOPAMAX [Concomitant]
  6. EFFEXOR [Concomitant]
  7. EFFEXOR [Concomitant]
  8. XANAX [Concomitant]
  9. RELPAX [Concomitant]
  10. VITAMINS [Concomitant]
  11. LOESTRIN 1.5/30 [Concomitant]
  12. MAZIDE WATER PILL [Concomitant]

REACTIONS (5)
  - ABDOMINAL PAIN UPPER [None]
  - BODY TEMPERATURE INCREASED [None]
  - DEVICE DISLOCATION [None]
  - MALAISE [None]
  - MIGRAINE [None]
